FAERS Safety Report 8136333-5 (Version None)
Quarter: 2012Q1

REPORT INFORMATION
  Report Type: 
  Country: None (occurrence: None)
  Receive Date: 20120103
  Receipt Date: 20111024
  Transmission Date: 20120608
  Serious: No
  Sender: FDA-Public Use
  Company Number: AE-2011-002650

PATIENT
  Age: 62 Year
  Sex: Male
  Weight: 78.4723 kg

DRUGS (6)
  1. ALLEGRA [Concomitant]
  2. PEGINTERFERON (PEGINTERFERON ALFA-2A) [Concomitant]
  3. RIBAVIRIN [Concomitant]
  4. IBUPROFEN (ADVIL) [Concomitant]
  5. INCIVEK [Suspect]
     Dosage: 2250 MG (750 MG,1 IN 8 HR), ORAL
     Route: 048
     Dates: start: 20110904
  6. XANAX [Concomitant]

REACTIONS (6)
  - DECREASED APPETITE [None]
  - PROCTALGIA [None]
  - HAEMOGLOBIN DECREASED [None]
  - ASTHENIA [None]
  - HEADACHE [None]
  - FEELING ABNORMAL [None]
